FAERS Safety Report 11101947 (Version 1)
Quarter: 2015Q2

REPORT INFORMATION
  Report Type: Spontaneous
  Country: US (occurrence: US)
  Receive Date: 20150510
  Receipt Date: 20150510
  Transmission Date: 20150821
  Serious: Yes (Congenital Anomaly, Other)
  Sender: FDA-Public Use
  Company Number: US-APOTEX-2015AP007895

PATIENT
  Age: 6 Year
  Sex: Female
  Weight: 3 kg

DRUGS (2)
  1. BRETHINE [Concomitant]
     Active Substance: TERBUTALINE SULFATE
     Indication: PRODUCT USED FOR UNKNOWN INDICATION
     Dosage: 5 MG, UNKNOWN
     Route: 064
  2. PAXIL [Suspect]
     Active Substance: PAROXETINE HYDROCHLORIDE
     Indication: DEPRESSION
     Dosage: 20 MG, QD
     Route: 064

REACTIONS (11)
  - Foetal exposure during pregnancy [Unknown]
  - Exposure during breast feeding [Unknown]
  - Atelectasis neonatal [Unknown]
  - Premature baby [Unknown]
  - Atrial septal defect [Unknown]
  - Supraventricular tachycardia [Unknown]
  - Tricuspid valve incompetence [Unknown]
  - Dilatation ventricular [Recovered/Resolved]
  - Cardiomegaly [Unknown]
  - Bundle branch block right [Unknown]
  - Right atrial dilatation [Recovered/Resolved]

NARRATIVE: CASE EVENT DATE: 20050923
